FAERS Safety Report 7638325-9 (Version None)
Quarter: 2011Q3

REPORT INFORMATION
  Report Type: 
  Country: None (occurrence: None)
  Receive Date: 20110727
  Receipt Date: 20110727
  Transmission Date: 20111222
  Serious: Yes (Other)
  Sender: FDA-Public Use
  Company Number: None

PATIENT
  Age: 50 Year
  Sex: Male
  Weight: 97.522 kg

DRUGS (1)
  1. MEFLOQUINE HYDROCHLORIDE [Suspect]
     Indication: MALARIA
     Dosage: 1 PILL
     Route: 048
     Dates: start: 20081120, end: 20081222

REACTIONS (8)
  - CONFUSIONAL STATE [None]
  - INSOMNIA [None]
  - ANXIETY [None]
  - AMNESIA [None]
  - VISUAL IMPAIRMENT [None]
  - DEPRESSION [None]
  - MYOCARDIAL INFARCTION [None]
  - WEIGHT DECREASED [None]
